FAERS Safety Report 6215365-8 (Version None)
Quarter: 2009Q2

REPORT INFORMATION
  Report Type: 
  Country: None (occurrence: None)
  Receive Date: 20090604
  Receipt Date: 20090526
  Transmission Date: 20091009
  Serious: Yes (Other)
  Sender: FDA-Public Use
  Company Number: PHHY2009DE20916

PATIENT
  Age: 61 Year
  Sex: Male

DRUGS (6)
  1. IMATINIB MESYLATE [Suspect]
     Indication: CHRONIC MYELOID LEUKAEMIA
     Dosage: 400 MG DAILY
     Dates: start: 20030901
  2. IMATINIB MESYLATE [Suspect]
     Dosage: 800 MG DAILY
     Dates: start: 20060901
  3. CYCLOSPORINE [Concomitant]
  4. MYCOPHENOLATE MOFETIL [Concomitant]
  5. TACROLIMUS [Concomitant]
     Dosage: 2 MG, BID
  6. STEROIDS NOS [Concomitant]
     Dosage: 32 MG, BID

REACTIONS (9)
  - BLAST CRISIS IN MYELOGENOUS LEUKAEMIA [None]
  - CHLOROMA [None]
  - CHROMOSOME ANALYSIS ABNORMAL [None]
  - GASTROINTESTINAL DISORDER [None]
  - GRAFT VERSUS HOST DISEASE [None]
  - MUSCULOSKELETAL PAIN [None]
  - NAUSEA [None]
  - THROMBOCYTOPENIA [None]
  - UPPER LIMB FRACTURE [None]
